FAERS Safety Report 11827837 (Version 2)
Quarter: 2015Q4

REPORT INFORMATION
  Report Type: Spontaneous
  Country: JP (occurrence: JP)
  Receive Date: 20151211
  Receipt Date: 20151230
  Transmission Date: 20160305
  Serious: No
  Sender: FDA-Public Use
  Company Number: JP-AMGEN-JPNSP2015133309

PATIENT

DRUGS (1)
  1. VECTIBIX [Suspect]
     Active Substance: PANITUMUMAB
     Indication: PRODUCT USED FOR UNKNOWN INDICATION
     Dosage: UNK
     Route: 041

REACTIONS (5)
  - Paronychia [Unknown]
  - Palmar-plantar erythrodysaesthesia syndrome [Unknown]
  - Drug eruption [Unknown]
  - Asteatosis [Unknown]
  - Dermatitis acneiform [Unknown]
